FAERS Safety Report 11521501 (Version 1)
Quarter: 2015Q3

REPORT INFORMATION
  Report Type: Spontaneous
  Country: US (occurrence: None)
  Receive Date: 20150917
  Receipt Date: 20150917
  Transmission Date: 20151125
  Serious: Yes (Life-Threatening, Hospitalization)
  Sender: FDA-Public Use
  Company Number: None

PATIENT
  Age: 67 Year
  Sex: Male
  Weight: 111 kg

DRUGS (2)
  1. ASPIRIN. [Suspect]
     Active Substance: ASPIRIN
     Indication: CORONARY ARTERIAL STENT INSERTION
     Route: 048
     Dates: start: 20081119, end: 20150825
  2. CLOPIDOGREL [Suspect]
     Active Substance: CLOPIDOGREL BISULFATE
     Indication: CORONARY ARTERIAL STENT INSERTION
     Route: 048
     Dates: start: 20070220, end: 20150825

REACTIONS (7)
  - Hypotension [None]
  - Anaemia [None]
  - Dizziness [None]
  - Gastritis erosive [None]
  - Dyspnoea exertional [None]
  - Gastric haemorrhage [None]
  - Chest pain [None]

NARRATIVE: CASE EVENT DATE: 20150825
